FAERS Safety Report 5636704-2 (Version None)
Quarter: 2008Q1

REPORT INFORMATION
  Report Type: 
  Country: None (occurrence: None)
  Receive Date: 20080220
  Receipt Date: 20080130
  Transmission Date: 20080703
  Serious: Yes (Life-Threatening, Hospitalization)
  Sender: FDA-Public Use
  Company Number: E2020-01834-CLI-CA

PATIENT
  Age: 81 Year
  Sex: Female
  Weight: 78.5 kg

DRUGS (12)
  1. DONEPEZIL HCL [Suspect]
     Indication: DEMENTIA
     Dosage: 5 MG, 1 IN 1 D, ORAL
     Route: 048
     Dates: start: 20070927, end: 20071107
  2. DONEPEZIL HCL [Suspect]
     Indication: VASCULAR DEMENTIA
     Dosage: 5 MG, 1 IN 1 D, ORAL
     Route: 048
     Dates: start: 20070927, end: 20071107
  3. TYLENOL W/ CODEINE NO. 3 [Concomitant]
  4. CYTOTEC [Concomitant]
  5. MONOPRIL [Concomitant]
  6. HYDROCHLOROTHIAZIDE [Concomitant]
  7. NORVASC [Concomitant]
  8. PANTOPRAZOLE SODIUM [Concomitant]
  9. VITAMIN C (ASCORBIC AID) [Concomitant]
  10. CENTRUM MULTIVITAMIN (CENTRUM) [Concomitant]
  11. CIPRO [Concomitant]
  12. IMODIUM [Concomitant]

REACTIONS (9)
  - ATRIAL FIBRILLATION [None]
  - BLOOD PRESSURE INCREASED [None]
  - CARDIAC FAILURE CONGESTIVE [None]
  - DIVERTICULUM [None]
  - GASTRITIS [None]
  - GASTROENTERITIS [None]
  - HIATUS HERNIA [None]
  - LONG QT SYNDROME [None]
  - VENTRICULAR TACHYCARDIA [None]
